FAERS Safety Report 17168967 (Version 1)
Quarter: 2019Q4

REPORT INFORMATION
  Report Type: Report from Study
  Country: US (occurrence: US)
  Receive Date: 20191218
  Receipt Date: 20191218
  Transmission Date: 20200122
  Serious: Yes (Death)
  Sender: FDA-Public Use
  Company Number: US-TAIHO ONCOLOGY  INC-EU-2019-04180

PATIENT
  Age: 65 Year
  Sex: Female

DRUGS (10)
  1. LORAZEPAM. [Concomitant]
     Active Substance: LORAZEPAM
     Dosage: CON
  2. MONTELUKAST [Concomitant]
     Active Substance: MONTELUKAST SODIUM
  3. MORPHINE SULFATE. [Concomitant]
     Active Substance: MORPHINE SULFATE
     Dosage: SOL
  4. PROCHLORPERAZINE. [Concomitant]
     Active Substance: PROCHLORPERAZINE
  5. FOLIC ACID. [Concomitant]
     Active Substance: FOLIC ACID
  6. ONDANSETRON [Concomitant]
     Active Substance: ONDANSETRON
  7. FENTANYL. [Concomitant]
     Active Substance: FENTANYL
     Dosage: DIS
  8. HYDROMORPHONE [Concomitant]
     Active Substance: HYDROMORPHONE
  9. LONSURF [Suspect]
     Active Substance: TIPIRACIL HYDROCHLORIDE\TRIFLURIDINE
     Indication: COLON CANCER
     Dosage: CURRENT CYCLE UNKNOWN.
     Route: 048
     Dates: start: 20190520, end: 20191206
  10. MIRTAZAPINE. [Concomitant]
     Active Substance: MIRTAZAPINE

REACTIONS (2)
  - Inappropriate schedule of product administration [Unknown]
  - Death [Fatal]

NARRATIVE: CASE EVENT DATE: 20190520
